FAERS Safety Report 6964724-4 (Version None)
Quarter: 2010Q3

REPORT INFORMATION
  Report Type: 
  Country: None (occurrence: None)
  Receive Date: 20100903
  Receipt Date: 20100824
  Transmission Date: 20110219
  Serious: Yes (Hospitalization, Other)
  Sender: FDA-Public Use
  Company Number: PHHY2010BR02109

PATIENT
  Sex: Male

DRUGS (7)
  1. GALVUS MET [Suspect]
     Indication: DIABETES PROPHYLAXIS
     Dosage: 1 TABLET (500/50 MG) IN THE BREAKFAST AND DINER
     Dates: end: 20100106
  2. GALVUS MET [Suspect]
     Dosage: 850/50MG
  3. GALVUS [Suspect]
     Dosage: 1 TABLET (50 MG) IN THE BREAKFAST AND DINER
  4. ANGIPRESS [Concomitant]
     Indication: BLOOD PRESSURE ABNORMAL
     Dosage: 25 MG, UNK
     Dates: start: 19900101
  5. DIOVAN [Concomitant]
     Indication: BLOOD PRESSURE ABNORMAL
  6. LIPIDIL [Concomitant]
     Indication: BLOOD CHOLESTEROL ABNORMAL
  7. SIMVASTATIN [Concomitant]
     Indication: BLOOD CHOLESTEROL INCREASED
     Dosage: UNK
     Dates: start: 20091201

REACTIONS (4)
  - BLOOD GLUCOSE INCREASED [None]
  - CONCOMITANT DISEASE AGGRAVATED [None]
  - HIP ARTHROPLASTY [None]
  - OSTEOARTHRITIS [None]
